FAERS Safety Report 19703885 (Version 2)
Quarter: 2021Q3

REPORT INFORMATION
  Report Type: Spontaneous
  Country: CA (occurrence: CA)
  Receive Date: 20210816
  Receipt Date: 20210906
  Transmission Date: 20211014
  Serious: Yes (Other)
  Sender: FDA-Public Use
  Company Number: CA-GLAXOSMITHKLINE-CACH2021054995

PATIENT
  Sex: Male

DRUGS (2)
  1. NICORETTE [Suspect]
     Active Substance: NICOTINE
     Indication: SMOKING CESSATION THERAPY
     Dosage: 6 TO 10 PIECES OF GUM PER DAY.
     Route: 065
  2. NICORETTE [Suspect]
     Active Substance: NICOTINE
     Dosage: STARTED ABOUT THREE AND A HALF YEARS AGO, WHEN CONSUMER NOTICED THAT HE WAS NOT ABLE TO QUIT 6 TO 10
     Route: 065

REACTIONS (2)
  - Incorrect product administration duration [Not Recovered/Not Resolved]
  - Nicotine dependence [Not Recovered/Not Resolved]
